FAERS Safety Report 23411705 (Version 3)
Quarter: 2025Q4

REPORT INFORMATION
  Report Type: Report from Study
  Country: US (occurrence: US)
  Receive Date: 20240117
  Receipt Date: 20251205
  Transmission Date: 20260118
  Serious: No
  Sender: KYOWA
  Company Number: US-KYOWAKIRIN-2024KK000491

PATIENT

DRUGS (6)
  1. BUROSUMAB [Suspect]
     Active Substance: BUROSUMAB
     Indication: Hereditary hypophosphataemic rickets
     Dosage: 90 UNK, 1X/4 WEEKS
     Route: 065
     Dates: start: 20250401
  2. BUROSUMAB [Suspect]
     Active Substance: BUROSUMAB
     Dosage: UNK
     Route: 065
     Dates: start: 2025
  3. BUROSUMAB [Suspect]
     Active Substance: BUROSUMAB
     Indication: Hereditary hypophosphataemic rickets
     Dosage: 90 MG, 1X/4 WEEKS
     Route: 058
  4. RISPERIDONE [Concomitant]
     Active Substance: RISPERIDONE
     Indication: Product used for unknown indication
     Dosage: UNK
     Route: 065
  5. FLUOXETINE HYDROCHLORIDE [Concomitant]
     Active Substance: FLUOXETINE HYDROCHLORIDE
     Indication: Product used for unknown indication
     Dosage: UNK
     Route: 065
  6. GUANFACINE [Concomitant]
     Active Substance: GUANFACINE
     Indication: Product used for unknown indication
     Dosage: 1 MG
     Route: 065

REACTIONS (3)
  - Pain [Unknown]
  - Product dose omission issue [Unknown]
  - Product dose omission issue [Unknown]

NARRATIVE: CASE EVENT DATE: 20231201
